FAERS Safety Report 5920540-3 (Version None)
Quarter: 2008Q4

REPORT INFORMATION
  Report Type: 
  Country: None (occurrence: None)
  Receive Date: 20081015
  Receipt Date: 20081015
  Transmission Date: 20090506
  Serious: Yes (Other)
  Sender: FDA-Public Use
  Company Number: None

PATIENT
  Age: 34 Year
  Sex: Male
  Weight: 81.6475 kg

DRUGS (1)
  1. FLONASE [Suspect]
     Indication: RHINITIS ALLERGIC
     Dosage: 1-2 SPRAYS IN EACH NOSTRIL DAILY -AS NEEDED- INHAL
     Route: 055
     Dates: start: 20071101, end: 20081013

REACTIONS (1)
  - BODY FAT DISORDER [None]
